FAERS Safety Report 4874240-1 (Version None)
Quarter: 2006Q1

REPORT INFORMATION
  Report Type: 
  Country: None (occurrence: None)
  Receive Date: 20060104
  Receipt Date: 20060104
  Transmission Date: 20060701
  Serious: Yes (Death, Life-Threatening, Hospitalization, Other)
  Sender: FDA-Public Use
  Company Number: None

PATIENT
  Age: 3 Month
  Sex: Male
  Weight: 4 kg

DRUGS (5)
  1. A AND D ORIGINAL (LANOLIN / PETROLATUM) OINTMENT [Suspect]
     Indication: RASH
     Dosage: TOPICAL
     Route: 061
  2. A AND D ORIGINAL (LANOLIN / PETROLATUM) OINTMENT [Suspect]
     Indication: SKIN CHAPPED
     Dosage: TOPICAL
     Route: 061
  3. OXYGEN [Suspect]
     Dosage: INHALATION
  4. MINERAL OIL OIL [Suspect]
     Indication: RASH
     Dosage: TOPICAL
     Route: 061
  5. MINERAL OIL OIL [Suspect]
     Indication: SKIN CHAPPED
     Dosage: TOPICAL
     Route: 061

REACTIONS (3)
  - BURNS THIRD DEGREE [None]
  - DEVICE FAILURE [None]
  - RESPIRATORY ARREST [None]
